FAERS Safety Report 9332383 (Version 2)
Quarter: 2013Q3

REPORT INFORMATION
  Report Type: Spontaneous
  Country: US (occurrence: US)
  Receive Date: 20130606
  Receipt Date: 20130813
  Transmission Date: 20140515
  Serious: Yes (Other)
  Sender: FDA-Public Use
  Company Number: PHEH2013US012063

PATIENT
  Sex: Male
  Weight: 89.35 kg

DRUGS (7)
  1. AFINITOR [Suspect]
     Indication: RENAL CELL CARCINOMA
     Dosage: UNK UKN, UNK
  2. MAGNESIUM OXIDE [Concomitant]
     Route: 048
  3. KCL [Concomitant]
     Route: 048
  4. LAMICTAL [Concomitant]
  5. VIT D3 [Concomitant]
     Route: 048
  6. NEXUM [Concomitant]
     Route: 048
  7. TOPROL XL [Concomitant]
     Route: 048

REACTIONS (1)
  - Hyperthyroidism [Unknown]
